FAERS Safety Report 10838873 (Version 1)
Quarter: 2015Q1

REPORT INFORMATION
  Report Type: Report from Study
  Country: US (occurrence: US)
  Receive Date: 20150219
  Receipt Date: 20150219
  Transmission Date: 20150721
  Serious: No
  Sender: FDA-Public Use
  Company Number: US-ABBVIE-14P-163-1229143-00

PATIENT
  Age: 51 Year
  Sex: Female

DRUGS (4)
  1. HUMIRA [Suspect]
     Active Substance: ADALIMUMAB
     Indication: ANKYLOSING SPONDYLITIS
     Dates: start: 20140404
  2. SOMA [Concomitant]
     Active Substance: CARISOPRODOL
     Indication: RELAXATION THERAPY
     Dosage: TWO TO THREE TIMES A DAY
  3. SOMA [Concomitant]
     Active Substance: CARISOPRODOL
     Indication: INSOMNIA
  4. SULFASALAZINE. [Concomitant]
     Active Substance: SULFASALAZINE
     Indication: ANKYLOSING SPONDYLITIS
     Dosage: TWO PILLS

REACTIONS (3)
  - Device issue [Unknown]
  - Pain [Not Recovered/Not Resolved]
  - Drug dose omission [Unknown]

NARRATIVE: CASE EVENT DATE: 20140404
